FAERS Safety Report 12321550 (Version 1)
Quarter: 2016Q2

REPORT INFORMATION
  Report Type: Spontaneous
  Country: US (occurrence: None)
  Receive Date: 20160429
  Receipt Date: 20160429
  Transmission Date: 20160815
  Serious: Yes (Other)
  Sender: FDA-Public Use
  Company Number: None

PATIENT
  Age: 60 Year
  Sex: Female
  Weight: 76.2 kg

DRUGS (4)
  1. ATIVAN [Concomitant]
     Active Substance: LORAZEPAM
  2. VITAMINS [Concomitant]
     Active Substance: VITAMINS
  3. CLOBETASOL PROPINATE, 0.5 % [Suspect]
     Active Substance: CLOBETASOL PROPIONATE
     Indication: RASH PAPULAR
     Dosage: AT BEDTIME APPLIED TO A SURFACE, USUALLY THE SKIN
     Dates: start: 20160210, end: 20160409
  4. SULCRAFATE [Concomitant]

REACTIONS (3)
  - Insomnia [None]
  - Diplopia [None]
  - Fatigue [None]

NARRATIVE: CASE EVENT DATE: 20160210
